FAERS Safety Report 17333709 (Version 2)
Quarter: 2020Q1

REPORT INFORMATION
  Report Type: Spontaneous
  Country: US (occurrence: US)
  Receive Date: 20200128
  Receipt Date: 20200207
  Transmission Date: 20200409
  Serious: Yes (Hospitalization)
  Sender: FDA-Public Use
  Company Number: US-TEVA-2020-US-1175284

PATIENT
  Age: 79 Year
  Sex: Female

DRUGS (1)
  1. EPOPROSTENOL. [Suspect]
     Active Substance: EPOPROSTENOL
     Indication: PULMONARY ARTERIAL HYPERTENSION
     Route: 042

REACTIONS (2)
  - Pleural effusion [Recovering/Resolving]
  - Pulmonary veno-occlusive disease [Recovering/Resolving]
